FAERS Safety Report 19724442 (Version 4)
Quarter: 2021Q3

REPORT INFORMATION
  Report Type: Report from Study
  Country: CZ (occurrence: CZ)
  Receive Date: 20210819
  Receipt Date: 20210831
  Transmission Date: 20211014
  Serious: Yes (Hospitalization)
  Sender: FDA-Public Use
  Company Number: CZ-LUNDBECK-DKLU3036620

PATIENT
  Age: 46 Year
  Sex: Female
  Weight: 68 kg

DRUGS (6)
  1. EPTINEZUMAB. [Suspect]
     Active Substance: EPTINEZUMAB
     Indication: MIGRAINE
     Route: 041
     Dates: start: 20201104, end: 20201104
  2. INDOMETACIN [Concomitant]
     Active Substance: INDOMETHACIN
     Indication: MIGRAINE
     Dosage: PRN
     Route: 054
     Dates: start: 1990
  3. EPTINEZUMAB. [Suspect]
     Active Substance: EPTINEZUMAB
     Route: 041
     Dates: start: 20210714, end: 20210714
  4. EPTINEZUMAB. [Suspect]
     Active Substance: EPTINEZUMAB
     Route: 041
     Dates: start: 20210127, end: 20210127
  5. EPTINEZUMAB. [Suspect]
     Active Substance: EPTINEZUMAB
     Route: 041
     Dates: start: 20210421, end: 20210421
  6. SUMATRIPTAN. [Concomitant]
     Active Substance: SUMATRIPTAN
     Indication: MIGRAINE
     Dosage: PRN
     Route: 048
     Dates: start: 199006

REACTIONS (1)
  - Acute myocardial infarction [Recovered/Resolved]

NARRATIVE: CASE EVENT DATE: 20210808
